FAERS Safety Report 10166275 (Version 2)
Quarter: 2014Q3

REPORT INFORMATION
  Report Type: Spontaneous
  Country: US (occurrence: US)
  Receive Date: 20140512
  Receipt Date: 20140703
  Transmission Date: 20150326
  Serious: Yes (Hospitalization, Other)
  Sender: FDA-Public Use
  Company Number: US-JNJFOC-20140419757

PATIENT
  Age: 67 Year
  Sex: Female

DRUGS (10)
  1. HUMIRA [Suspect]
     Active Substance: ADALIMUMAB
     Indication: CROHN^S DISEASE
     Route: 065
     Dates: end: 201209
  2. LEVAQUIN [Suspect]
     Active Substance: LEVOFLOXACIN
     Indication: LOBAR PNEUMONIA
     Route: 042
     Dates: start: 201403
  3. TYLENOL [Suspect]
     Active Substance: ACETAMINOPHEN
     Route: 048
  4. FOLIC ACID. [Concomitant]
     Active Substance: FOLIC ACID
     Route: 065
  5. LEVAQUIN [Suspect]
     Active Substance: LEVOFLOXACIN
     Indication: PNEUMONIA
     Route: 048
  6. HUMIRA [Suspect]
     Active Substance: ADALIMUMAB
     Indication: CROHN^S DISEASE
     Route: 065
     Dates: start: 2008, end: 201205
  7. FOSAMAX [Concomitant]
     Active Substance: ALENDRONATE SODIUM
     Indication: OSTEOPENIA
     Route: 065
  8. TYLENOL [Suspect]
     Active Substance: ACETAMINOPHEN
     Indication: PYREXIA
     Route: 048
     Dates: start: 20140315
  9. METHOTREXATE [Concomitant]
     Active Substance: METHOTREXATE
     Route: 030
  10. NUTRITIONAL SUPPLEMENT [Concomitant]
     Active Substance: DIETARY SUPPLEMENT
     Route: 065

REACTIONS (22)
  - Crohn^s disease [Unknown]
  - Herpes zoster [Unknown]
  - Cough [Unknown]
  - Circadian rhythm sleep disorder [Unknown]
  - Incisional hernia [Unknown]
  - Asthenia [Unknown]
  - Tremor [Unknown]
  - Pneumonia [Unknown]
  - Insomnia [Unknown]
  - Lobar pneumonia [Unknown]
  - Hypophagia [Unknown]
  - Malabsorption [Unknown]
  - Drug ineffective [Unknown]
  - Malaise [Unknown]
  - Activities of daily living impaired [Unknown]
  - Nausea [Unknown]
  - Hyperhidrosis [Unknown]
  - Caecectomy [Unknown]
  - Bronchitis [Unknown]
  - Nasopharyngitis [Unknown]
  - Nasal congestion [Unknown]
  - Pyrexia [Unknown]

NARRATIVE: CASE EVENT DATE: 2008
